FAERS Safety Report 5451775-4 (Version None)
Quarter: 2007Q3

REPORT INFORMATION
  Report Type: 
  Country: None (occurrence: None)
  Receive Date: 20070912
  Receipt Date: 20070907
  Transmission Date: 20080115
  Serious: Yes (Death)
  Sender: FDA-Public Use
  Company Number: 167-C5013-07090273

PATIENT
  Age: 71 Year
  Sex: Female

DRUGS (2)
  1. CC-5013 (LENALIDOMIDE) (CAPSULES) [Suspect]
     Indication: ACUTE MYELOID LEUKAEMIA
     Dosage: 10 MG, DAILY, ORAL
     Route: 048
     Dates: start: 20060926, end: 20061002
  2. CC-5013 (LENALIDOMIDE) (CAPSULES) [Suspect]
     Indication: REFRACTORY ANAEMIA
     Dosage: 10 MG, DAILY, ORAL
     Route: 048
     Dates: start: 20060926, end: 20061002

REACTIONS (1)
  - DEATH [None]
